FAERS Safety Report 23897029 (Version 1)
Quarter: 2024Q2

REPORT INFORMATION
  Report Type: Spontaneous
  Country: FR (occurrence: FR)
  Receive Date: 20240524
  Receipt Date: 20240524
  Transmission Date: 20240715
  Serious: Yes (Hospitalization)
  Sender: FDA-Public Use
  Company Number: None

PATIENT
  Age: 61 Year
  Sex: Male

DRUGS (3)
  1. FLUOXETINE HYDROCHLORIDE [Suspect]
     Active Substance: FLUOXETINE HYDROCHLORIDE
     Indication: Depression
     Dosage: 20 MG, DAILY
     Route: 048
  2. FLUINDIONE [Suspect]
     Active Substance: FLUINDIONE
     Indication: Tricuspid valve replacement
     Dosage: 20 MG, DAILY
     Route: 048
     Dates: start: 20240322
  3. LOVENOX [Suspect]
     Active Substance: ENOXAPARIN SODIUM
     Indication: Tricuspid valve replacement
     Dosage: 80 MG, DAILY
     Route: 058
     Dates: start: 20240319, end: 20240405

REACTIONS (1)
  - Haemoptysis [Recovered/Resolved]

NARRATIVE: CASE EVENT DATE: 20240404
